FAERS Safety Report 10879495 (Version 1)
Quarter: 2015Q1

REPORT INFORMATION
  Report Type: Report from Study
  Country: BR (occurrence: BR)
  Receive Date: 20150302
  Receipt Date: 20150302
  Transmission Date: 20150721
  Serious: Yes (Other)
  Sender: FDA-Public Use
  Company Number: BR-ABBVIE-15K-020-1352011-00

PATIENT
  Sex: Female
  Weight: 60 kg

DRUGS (11)
  1. AAS [Concomitant]
     Active Substance: ASPIRIN
     Indication: ANTICOAGULANT THERAPY
     Route: 048
     Dates: start: 2003
  2. PREDNISONE. [Concomitant]
     Active Substance: PREDNISONE
     Indication: ASTHMA
     Route: 048
     Dates: start: 1974
  3. DIAZEPAM. [Concomitant]
     Active Substance: DIAZEPAM
     Indication: MENTAL DISORDER
     Dosage: A QUARTER OF TABLET PER NIGHT
     Route: 048
     Dates: start: 1972
  4. LOSARTAN [Concomitant]
     Active Substance: LOSARTAN
     Indication: BLOOD PRESSURE ABNORMAL
     Route: 048
     Dates: start: 201410
  5. OMEPRAZOLE. [Concomitant]
     Active Substance: OMEPRAZOLE
     Indication: GASTRITIS
     Route: 048
     Dates: start: 1974
  6. INDOMETHACIN. [Concomitant]
     Active Substance: INDOMETHACIN
     Indication: MUSCLE RELAXANT THERAPY
     Route: 048
     Dates: start: 2014
  7. ARAVA [Concomitant]
     Active Substance: LEFLUNOMIDE
     Indication: RHEUMATOID ARTHRITIS
     Route: 048
     Dates: start: 2014
  8. RISPERIDONE. [Concomitant]
     Active Substance: RISPERIDONE
     Indication: CARDIAC DISORDER
     Route: 048
     Dates: start: 2014
  9. NIMESULIDE [Concomitant]
     Active Substance: NIMESULIDE
     Indication: CHEST PAIN
     Route: 048
     Dates: start: 2009
  10. HUMIRA [Suspect]
     Active Substance: ADALIMUMAB
     Indication: RHEUMATOID ARTHRITIS
     Route: 058
     Dates: start: 20090227
  11. HYDROXYZINE [Concomitant]
     Active Substance: HYDROXYZINE\HYDROXYZINE HYDROCHLORIDE
     Indication: CARDIAC DISORDER
     Route: 048

REACTIONS (4)
  - Weight decreased [Not Recovered/Not Resolved]
  - Decreased appetite [Not Recovered/Not Resolved]
  - Elbow deformity [Recovering/Resolving]
  - Hypotension [Recovered/Resolved]

NARRATIVE: CASE EVENT DATE: 2011
